FAERS Safety Report 9103880 (Version 2)
Quarter: 2013Q2

REPORT INFORMATION
  Report Type: Spontaneous
  Country: US (occurrence: US)
  Receive Date: 20130219
  Receipt Date: 20130410
  Transmission Date: 20140414
  Serious: No
  Sender: FDA-Public Use
  Company Number: US-PFIZER INC-2013056315

PATIENT
  Age: 22 Year
  Sex: Male
  Weight: 79 kg

DRUGS (1)
  1. BENEFIX [Suspect]
     Indication: FACTOR IX DEFICIENCY
     Dosage: 25 IU/KG, AS NEEDED

REACTIONS (2)
  - Disease complication [Unknown]
  - Joint injury [Unknown]
